FAERS Safety Report 4384673-8 (Version None)
Quarter: 2004Q2

REPORT INFORMATION
  Report Type: 
  Country: None (occurrence: None)
  Receive Date: 20040621
  Receipt Date: 20040611
  Transmission Date: 20050107
  Serious: Yes (Death)
  Sender: FDA-Public Use
  Company Number: 200409069

PATIENT
  Age: 69 Year
  Sex: Male

DRUGS (5)
  1. STREPTOKINASE (STREPTOKINASE) (UNKNOWN) [Suspect]
     Indication: MYOCARDIAL INFARCTION
     Dosage: 1.5 MIU DAILY IV
     Route: 042
     Dates: start: 20040522, end: 20040522
  2. ASPIRIN [Suspect]
     Indication: MYOCARDIAL INFARCTION
     Dosage: 300 MG DAILY PO
     Route: 048
     Dates: start: 20040522, end: 20040522
  3. ENOXAPARIN OR PLACEBO VS HEPARIN OR PLACEBO [Suspect]
     Indication: MYOCARDIAL INFARCTION
     Dosage: IV
     Route: 042
     Dates: start: 20040522, end: 20040522
  4. NITRATE [Concomitant]
  5. XYLOCAINE [Concomitant]

REACTIONS (8)
  - APNOEA [None]
  - BLOOD PRESSURE IMMEASURABLE [None]
  - CARDIAC ARREST [None]
  - ELECTROMECHANICAL DISSOCIATION [None]
  - MYOCARDIAL RUPTURE [None]
  - RESPIRATORY ARREST [None]
  - VENTRICULAR FIBRILLATION [None]
  - VENTRICULAR TACHYCARDIA [None]
